FAERS Safety Report 6139036-1 (Version None)
Quarter: 2009Q1

REPORT INFORMATION
  Report Type: 
  Country: None (occurrence: None)
  Receive Date: 20090330
  Receipt Date: 20090317
  Transmission Date: 20090719
  Serious: Yes (Other)
  Sender: FDA-Public Use
  Company Number: 2009US000828

PATIENT
  Age: 64 Year
  Sex: Male

DRUGS (4)
  1. LEXISCAN [Suspect]
     Indication: SCAN MYOCARDIAL PERFUSION
     Dosage: 0.4 MG,  IV NOS, 0.08MG/ML
     Route: 042
     Dates: start: 20090226, end: 20090226
  2. VITAMIN B-12 [Concomitant]
  3. ASPIRIN [Concomitant]
  4. CALCIUM (CALCIUM) [Concomitant]

REACTIONS (1)
  - HYPERTENSION [None]
